FAERS Safety Report 6841962-2 (Version None)
Quarter: 2010Q3

REPORT INFORMATION
  Report Type: 
  Country: None (occurrence: None)
  Receive Date: 20100714
  Receipt Date: 20071207
  Transmission Date: 20110219
  Serious: No
  Sender: FDA-Public Use
  Company Number: US-PFIZER INC-2007059292

PATIENT
  Sex: Female
  Weight: 63.5 kg

DRUGS (6)
  1. CHANTIX [Suspect]
     Indication: SMOKING CESSATION THERAPY
     Dates: start: 20070705
  2. LOTREL [Concomitant]
     Indication: HYPERTENSION
  3. XANAX [Concomitant]
  4. LISINOPRIL [Concomitant]
  5. CALCITRIOL [Concomitant]
  6. CELEXA [Concomitant]

REACTIONS (4)
  - ANXIETY [None]
  - INSOMNIA [None]
  - NAUSEA [None]
  - PALPITATIONS [None]
